FAERS Safety Report 4682334-9 (Version None)
Quarter: 2005Q2

REPORT INFORMATION
  Report Type: 
  Country: None (occurrence: None)
  Receive Date: 20050602
  Receipt Date: 20050602
  Transmission Date: 20051028
  Serious: Yes (Hospitalization)
  Sender: FDA-Public Use
  Company Number: None

PATIENT
  Age: 57 Year
  Sex: Female
  Weight: 57.1532 kg

DRUGS (2)
  1. IRESSA [Suspect]
     Indication: BREAST CANCER METASTATIC
     Dosage: 250 MG PO QD
     Route: 048
     Dates: start: 20041229, end: 20050518
  2. DULCOLAX [Concomitant]

REACTIONS (8)
  - CONSTIPATION [None]
  - DISEASE PROGRESSION [None]
  - FAECAL INCONTINENCE [None]
  - NAUSEA [None]
  - PAIN [None]
  - PALMAR-PLANTAR ERYTHRODYSAESTHESIA SYNDROME [None]
  - SYNCOPE [None]
  - VOMITING [None]
